FAERS Safety Report 11755356 (Version 2)
Quarter: 2016Q1

REPORT INFORMATION
  Report Type: Report from Study
  Country: VE (occurrence: VE)
  Receive Date: 20151119
  Receipt Date: 20160311
  Transmission Date: 20160525
  Serious: Yes (Other)
  Sender: FDA-Public Use
  Company Number: PHHY2015VE151614

PATIENT
  Age: 67 Year
  Sex: Female

DRUGS (3)
  1. TASIGNA [Suspect]
     Active Substance: NILOTINIB
     Dosage: 400 MG, QD (ONE IN THE MORNING AND ONE IN THE AFTERNOON)
     Route: 048
  2. TASIGNA [Suspect]
     Active Substance: NILOTINIB
     Indication: CHRONIC MYELOID LEUKAEMIA
     Dosage: 600 MG, QD (ONE IN THE MORNING AND TWO IN THE AFTERNOON)
     Route: 048
     Dates: start: 2011
  3. GLIVEC [Suspect]
     Active Substance: IMATINIB MESYLATE
     Indication: CHRONIC MYELOID LEUKAEMIA
     Dosage: UNK OT, QD
     Route: 048
     Dates: start: 2015

REACTIONS (10)
  - Drug intolerance [Unknown]
  - Pain [Unknown]
  - Flavivirus infection [Unknown]
  - Chikungunya virus infection [Unknown]
  - Musculoskeletal pain [Unknown]
  - Pain in extremity [Unknown]
  - Nausea [Unknown]
  - Influenza [Unknown]
  - Weight increased [Unknown]
  - Wrong drug administered [Unknown]

NARRATIVE: CASE EVENT DATE: 201501
